FAERS Safety Report 8607039 (Version 3)
Quarter: 2014Q1

REPORT INFORMATION
  Report Type: Spontaneous
  Country: US (occurrence: US)
  Receive Date: 20120611
  Receipt Date: 20140122
  Transmission Date: 20141002
  Serious: Yes (Hospitalization, Disabling)
  Sender: FDA-Public Use
  Company Number: US-ASTRAZENECA-2012SE35866

PATIENT
  Age: 42 Year
  Sex: Female

DRUGS (14)
  1. NEXIUM [Suspect]
     Indication: GASTROOESOPHAGEAL REFLUX DISEASE
     Route: 048
     Dates: start: 20031222
  2. NEXIUM [Suspect]
     Indication: GASTRIC DISORDER
     Route: 048
     Dates: start: 20031222
  3. PRILOSEC [Suspect]
     Route: 048
  4. PRILOSEC OTC [Suspect]
     Route: 048
  5. ZANTAC [Concomitant]
     Dates: start: 20021117
  6. DIOVAN HCT [Concomitant]
     Indication: HYPERTENSION
  7. ETODOLAC [Concomitant]
     Dates: start: 20000303
  8. VEETIDS [Concomitant]
     Dates: start: 20000303
  9. AXID [Concomitant]
     Dates: start: 20010404
  10. SONATA [Concomitant]
     Dates: start: 20021212
  11. LORAZEPAM [Concomitant]
     Dates: start: 20030722
  12. PREDNISONE [Concomitant]
     Dates: start: 20030722
  13. AMITRIPTYLINE [Concomitant]
     Dates: start: 20040904
  14. WARFARIN [Concomitant]
     Dates: start: 20080516

REACTIONS (10)
  - Fall [Unknown]
  - Tibia fracture [Unknown]
  - Wrist fracture [Unknown]
  - Radius fracture [Unknown]
  - Hearing impaired [Unknown]
  - Gastrointestinal disorder [Unknown]
  - Ulnar nerve injury [Unknown]
  - Osteoporosis [Unknown]
  - Bone disorder [Unknown]
  - Depression [Unknown]
